FAERS Safety Report 10412559 (Version 1)
Quarter: 2014Q3

REPORT INFORMATION
  Report Type: Spontaneous
  Country: US (occurrence: None)
  Receive Date: 20140826
  Receipt Date: 20140826
  Transmission Date: 20150326
  Serious: Yes (Other)
  Sender: FDA-Public Use
  Company Number: None

PATIENT
  Age: 67 Year
  Sex: Female
  Weight: 70.76 kg

DRUGS (1)
  1. METHIMAZOLE 10 MG [Suspect]
     Active Substance: METHIMAZOLE
     Indication: HYPERTHYROIDISM
     Dosage: 1 PILLS TWICE DAILY TAKEN BY MOUTH
     Route: 048
     Dates: start: 20140701, end: 20140825

REACTIONS (15)
  - Dry skin [None]
  - Sluggishness [None]
  - Vision blurred [None]
  - Insomnia [None]
  - Alopecia [None]
  - Nail disorder [None]
  - Decreased appetite [None]
  - Burning sensation [None]
  - Eye irritation [None]
  - Fatigue [None]
  - Dysgeusia [None]
  - Urticaria [None]
  - Rash [None]
  - Depression [None]
  - Asthenia [None]

NARRATIVE: CASE EVENT DATE: 20140825
